FAERS Safety Report 6683982-7 (Version None)
Quarter: 2010Q2

REPORT INFORMATION
  Report Type: 
  Country: None (occurrence: None)
  Receive Date: 20100416
  Receipt Date: 20100408
  Transmission Date: 20101027
  Serious: Yes (Other)
  Sender: FDA-Public Use
  Company Number: FR-KINGPHARMUSA00001-K201000420

PATIENT

DRUGS (2)
  1. ALTACE [Suspect]
     Dosage: 2.5 MG, UNK
  2. FELODIPINE [Suspect]
     Dosage: 2.5 MG, UNK

REACTIONS (1)
  - HYPERTENSION [None]
